FAERS Safety Report 15461168 (Version 1)
Quarter: 2018Q4

REPORT INFORMATION
  Report Type: Spontaneous
  Country: US (occurrence: US)
  Receive Date: 20181003
  Receipt Date: 20181003
  Transmission Date: 20190204
  Serious: Yes (Other)
  Sender: FDA-Public Use
  Company Number: US-MYLANLABS-2018M1072009

PATIENT
  Age: 73 Year
  Sex: Female

DRUGS (2)
  1. PREDNISONE MYLAN [Suspect]
     Active Substance: PREDNISONE
     Indication: PRODUCT USED FOR UNKNOWN INDICATION
  2. MYRBETRIQ [Suspect]
     Active Substance: MIRABEGRON
     Indication: PRODUCT USED FOR UNKNOWN INDICATION
     Dosage: 50 MG, UNK
     Dates: start: 20180807

REACTIONS (4)
  - Dizziness [Unknown]
  - Hypertension [Unknown]
  - Intraocular pressure increased [Unknown]
  - Headache [Unknown]

NARRATIVE: CASE EVENT DATE: 201808
